FAERS Safety Report 8534226-2 (Version None)
Quarter: 2012Q3

REPORT INFORMATION
  Report Type: 
  Country: None (occurrence: None)
  Receive Date: 20120711
  Receipt Date: 20091222
  Transmission Date: 20120928
  Serious: Yes (Hospitalization)
  Sender: FDA-Public Use
  Company Number: 2009AP005133

PATIENT
  Age: 72 Year
  Sex: Female

DRUGS (2)
  1. RISPERIDONE [Suspect]
     Indication: SCHIZOPHRENIA, PARANOID TYPE
     Dosage: 3 MG;QD; 1 MG;QD;3 MG;QD
  2. ORAL ANTIDIABETICS [Concomitant]

REACTIONS (2)
  - AGITATION [None]
  - WITHDRAWAL SYNDROME [None]
